FAERS Safety Report 10694227 (Version 1)
Quarter: 2015Q1

REPORT INFORMATION
  Report Type: Spontaneous
  Country: US (occurrence: US)
  Receive Date: 20150106
  Receipt Date: 20150106
  Transmission Date: 20150721
  Serious: No
  Sender: FDA-Public Use
  Company Number: US-BRISTOL-MYERS SQUIBB COMPANY-BMS-2014-003437

PATIENT
  Age: 38 Year
  Sex: Female

DRUGS (1)
  1. DASATINIB [Suspect]
     Active Substance: DASATINIB
     Indication: CHRONIC MYELOID LEUKAEMIA
     Dosage: 100 MG, UNK
     Route: 065
     Dates: start: 20140811

REACTIONS (4)
  - Headache [Unknown]
  - Muscle tightness [Unknown]
  - Pain in jaw [Unknown]
  - Insomnia [Unknown]

NARRATIVE: CASE EVENT DATE: 20140811
